FAERS Safety Report 19451884 (Version 1)
Quarter: 2021Q2

REPORT INFORMATION
  Report Type: Spontaneous
  Country: UZ (occurrence: UZ)
  Receive Date: 20210623
  Receipt Date: 20210623
  Transmission Date: 20210717
  Serious: Yes (Hospitalization, Other)
  Sender: FDA-Public Use
  Company Number: UZ-JNJFOC-20210632257

PATIENT
  Age: 21 Year
  Sex: Male
  Weight: 51 kg

DRUGS (15)
  1. DELAMANID [Suspect]
     Active Substance: DELAMANID
     Route: 065
     Dates: start: 202101, end: 20210406
  2. LINEZOLID. [Suspect]
     Active Substance: LINEZOLID
     Route: 065
     Dates: start: 20210419
  3. CLOFAZIMINE [Suspect]
     Active Substance: CLOFAZIMINE
     Route: 065
     Dates: start: 20210419
  4. CYCLOSERINE. [Suspect]
     Active Substance: CYCLOSERINE
     Indication: TUBERCULOSIS
     Dates: start: 20200924, end: 202011
  5. SIRTURO [Suspect]
     Active Substance: BEDAQUILINE FUMARATE
     Route: 048
     Dates: start: 20210419
  6. LINEZOLID. [Suspect]
     Active Substance: LINEZOLID
     Indication: TUBERCULOSIS
     Route: 065
     Dates: start: 20200924, end: 202012
  7. CLOFAZIMINE [Suspect]
     Active Substance: CLOFAZIMINE
     Indication: TUBERCULOSIS
     Route: 065
     Dates: start: 20200924, end: 202012
  8. CYCLOSERINE. [Suspect]
     Active Substance: CYCLOSERINE
     Dates: start: 202101, end: 20210406
  9. SIRTURO [Suspect]
     Active Substance: BEDAQUILINE FUMARATE
     Indication: TUBERCULOSIS
     Route: 048
     Dates: start: 20200924, end: 202012
  10. DELAMANID [Suspect]
     Active Substance: DELAMANID
     Indication: TUBERCULOSIS
     Route: 065
     Dates: start: 20200924, end: 202012
  11. CLOFAZIMINE [Suspect]
     Active Substance: CLOFAZIMINE
     Route: 065
     Dates: start: 202101, end: 20210406
  12. SIRTURO [Suspect]
     Active Substance: BEDAQUILINE FUMARATE
     Route: 048
     Dates: start: 202101, end: 20210406
  13. DELAMANID [Suspect]
     Active Substance: DELAMANID
     Route: 065
     Dates: start: 20210419
  14. LINEZOLID. [Suspect]
     Active Substance: LINEZOLID
     Route: 065
     Dates: start: 202101, end: 20210406
  15. CYCLOSERINE. [Suspect]
     Active Substance: CYCLOSERINE
     Dates: start: 202012, end: 202012

REACTIONS (2)
  - Rash pruritic [Not Recovered/Not Resolved]
  - Seizure [Recovering/Resolving]

NARRATIVE: CASE EVENT DATE: 202012
